FAERS Safety Report 8919493 (Version 2)
Quarter: 2013Q1

REPORT INFORMATION
  Report Type: Spontaneous
  Country: DK (occurrence: None)
  Receive Date: 20121114
  Receipt Date: 20121123
  Transmission Date: 20140127
  Serious: Yes (Other)
  Sender: FDA-Public Use
  Company Number: 2012MA013309

PATIENT
  Sex: Female

DRUGS (1)
  1. FLUOXETINE [Suspect]
     Indication: DEPRESSION

REACTIONS (13)
  - Memory impairment [None]
  - Influenza [None]
  - Malaise [None]
  - Fatigue [None]
  - Arthralgia [None]
  - Arthralgia [None]
  - Back pain [None]
  - Self injurious behaviour [None]
  - Legal problem [None]
  - Urinary tract infection [None]
  - Product quality issue [None]
  - Drug ineffective [None]
  - Alcohol use [None]
